FAERS Safety Report 15966161 (Version 1)
Quarter: 2019Q1

REPORT INFORMATION
  Report Type: Spontaneous
  Country: JP (occurrence: JP)
  Receive Date: 20190215
  Receipt Date: 20190215
  Transmission Date: 20190418
  Serious: Yes (Hospitalization, Other)
  Sender: FDA-Public Use
  Company Number: JP-NAPPMUNDI-GBR-2019-0064178

PATIENT
  Sex: Male
  Weight: 54 kg

DRUGS (4)
  1. LYRICA [Concomitant]
     Active Substance: PREGABALIN
     Indication: SPINAL COMPRESSION FRACTURE
     Dosage: 150 MG, DAILY
     Route: 048
  2. LYRICA [Concomitant]
     Active Substance: PREGABALIN
     Indication: NEUROPATHY PERIPHERAL
  3. NORSPAN [Suspect]
     Active Substance: BUPRENORPHINE
     Indication: BACK PAIN
  4. NORSPAN [Suspect]
     Active Substance: BUPRENORPHINE
     Indication: SPINAL COMPRESSION FRACTURE
     Dosage: 20 MCG, Q1H
     Route: 062

REACTIONS (5)
  - Gait disturbance [Unknown]
  - Brain stem infarction [Unknown]
  - Off label use [Unknown]
  - Renal impairment [Unknown]
  - Hemiparesis [Unknown]
